FAERS Safety Report 12665463 (Version 4)
Quarter: 2016Q4

REPORT INFORMATION
  Report Type: Spontaneous
  Country: JP (occurrence: JP)
  Receive Date: 20160818
  Receipt Date: 20161108
  Transmission Date: 20170207
  Serious: Yes (Other)
  Sender: FDA-Public Use
  Company Number: ALJP2016JP001115

PATIENT
  Age: 79 Year
  Sex: Male

DRUGS (4)
  1. TEARBALANCE [Concomitant]
     Active Substance: HYALURONATE SODIUM
     Indication: DRY EYE
     Dosage: UNK
     Route: 047
     Dates: start: 20160708
  2. FLUMETHOLON [Concomitant]
     Active Substance: FLUOROMETHOLONE
     Indication: DRY EYE
     Dosage: UNK UNK, TID
     Route: 047
     Dates: start: 20160708, end: 20160711
  3. AZORGA COMBINATION OPHTHALMIC SUSPENSION [Suspect]
     Active Substance: BRINZOLAMIDE\TIMOLOL MALEATE
     Indication: OPEN ANGLE GLAUCOMA
     Dosage: 1 GTT, BID
     Route: 047
     Dates: start: 20160708, end: 20160709
  4. FLUMETHOLON [Concomitant]
     Active Substance: FLUOROMETHOLONE
     Indication: CORNEAL DISORDER
     Dosage: UNK UNK, QID
     Route: 047
     Dates: start: 20160729

REACTIONS (4)
  - Visual acuity reduced [Unknown]
  - Vision blurred [Unknown]
  - Corneal disorder [Recovered/Resolved]
  - Corneal oedema [Recovered/Resolved]

NARRATIVE: CASE EVENT DATE: 201607
